FAERS Safety Report 16920047 (Version 2)
Quarter: 2019Q4

REPORT INFORMATION
  Report Type: Spontaneous
  Country: US (occurrence: US)
  Receive Date: 20191015
  Receipt Date: 20191115
  Transmission Date: 20200122
  Serious: Yes (Other)
  Sender: FDA-Public Use
  Company Number: US-JNJFOC-20191016862

PATIENT
  Sex: Female

DRUGS (3)
  1. PEPCID [Concomitant]
     Active Substance: FAMOTIDINE
     Indication: FLATULENCE
  2. PEPTO-BISMOL [Concomitant]
     Active Substance: BISMUTH SUBSALICYLATE
  3. IMBRUVICA [Suspect]
     Active Substance: IBRUTINIB
     Indication: PRODUCT USED FOR UNKNOWN INDICATION
     Dosage: 280 MG, QD
     Route: 048

REACTIONS (12)
  - Feeling abnormal [Unknown]
  - Alopecia [Unknown]
  - Gastrointestinal infection [Unknown]
  - Hypertension [Unknown]
  - Joint swelling [Unknown]
  - Nail disorder [Unknown]
  - Cataract [Unknown]
  - Hypoacusis [Unknown]
  - Vein disorder [Unknown]
  - Atrial fibrillation [Unknown]
  - Hypoaesthesia [Unknown]
  - Adverse event [Unknown]

NARRATIVE: CASE EVENT DATE: 2018
